FAERS Safety Report 8103505-5 (Version None)
Quarter: 2012Q1

REPORT INFORMATION
  Report Type: 
  Country: None (occurrence: None)
  Receive Date: 20120127
  Receipt Date: 20120117
  Transmission Date: 20120608
  Serious: Yes (Hospitalization, Other)
  Sender: FDA-Public Use
  Company Number: 2010MA003813

PATIENT
  Sex: Female
  Weight: 112.9457 kg

DRUGS (9)
  1. METOCLOPRAMIDE [Suspect]
     Indication: GASTROOESOPHAGEAL REFLUX DISEASE
     Dosage: 10 MG;QID;PO
     Route: 048
     Dates: start: 20060623, end: 20090301
  2. METOCLOPRAMIDE [Suspect]
     Indication: NAUSEA
     Dosage: 10 MG;QID;PO
     Route: 048
     Dates: start: 20060623, end: 20090301
  3. METOCLOPRAMIDE [Suspect]
     Indication: IMPAIRED GASTRIC EMPTYING
     Dosage: 10 MG;QID;PO
     Route: 048
     Dates: start: 20060623, end: 20090301
  4. CLOTRIMAZOLE [Concomitant]
  5. ATENOLOL [Concomitant]
  6. BETAMETHASONE [Concomitant]
  7. GLYBURIDE [Concomitant]
  8. ALLOPURINOL [Concomitant]
  9. FUROSEMIDE [Concomitant]

REACTIONS (94)
  - SLEEP APNOEA SYNDROME [None]
  - PROTEINURIA [None]
  - HYPOAESTHESIA [None]
  - HYPERSOMNIA [None]
  - RHEUMATIC HEART DISEASE [None]
  - OXYGEN SATURATION DECREASED [None]
  - DISTURBANCE IN ATTENTION [None]
  - HYPOAESTHESIA ORAL [None]
  - PNEUMONIA [None]
  - PAIN [None]
  - NAUSEA [None]
  - COGNITIVE DISORDER [None]
  - ARTHROPOD BITE [None]
  - WEIGHT DECREASED [None]
  - DYSPNOEA EXERTIONAL [None]
  - CONFUSIONAL STATE [None]
  - HYPOGLYCAEMIA [None]
  - BALANCE DISORDER [None]
  - PULMONARY HYPERTENSION [None]
  - EXTRAPYRAMIDAL DISORDER [None]
  - ISCHAEMIC STROKE [None]
  - VOMITING [None]
  - SOMNOLENCE [None]
  - MITRAL VALVE INCOMPETENCE [None]
  - DEPRESSION [None]
  - VITAMIN D DEFICIENCY [None]
  - OBESITY [None]
  - FATIGUE [None]
  - TYPE 2 DIABETES MELLITUS [None]
  - CARDIAC VALVE DISEASE [None]
  - FLUID OVERLOAD [None]
  - MUSCLE TWITCHING [None]
  - COLONIC POLYP [None]
  - NECK PAIN [None]
  - EYE MOVEMENT DISORDER [None]
  - DIARRHOEA [None]
  - PARKINSON'S DISEASE [None]
  - DRY EYE [None]
  - RETCHING [None]
  - DECREASED APPETITE [None]
  - OEDEMA PERIPHERAL [None]
  - GLAUCOMA [None]
  - DIZZINESS [None]
  - OBSTRUCTIVE AIRWAYS DISORDER [None]
  - TREMOR [None]
  - MITRAL VALVE STENOSIS [None]
  - GOITRE [None]
  - HYPOTHYROIDISM [None]
  - SPINAL OSTEOARTHRITIS [None]
  - MEMORY IMPAIRMENT [None]
  - EARLY SATIETY [None]
  - MITRAL VALVE CALCIFICATION [None]
  - DILATATION VENTRICULAR [None]
  - TARDIVE DYSKINESIA [None]
  - ANXIETY [None]
  - DYSKINESIA [None]
  - DIVERTICULUM [None]
  - HYPOCHROMASIA [None]
  - WEIGHT INCREASED [None]
  - EPISTAXIS [None]
  - LEUKOENCEPHALOPATHY [None]
  - NASAL DRYNESS [None]
  - IMPAIRED GASTRIC EMPTYING [None]
  - DIPLOPIA [None]
  - MUSCULOSKELETAL PAIN [None]
  - DILATATION ATRIAL [None]
  - HEPATIC STEATOSIS [None]
  - HIATUS HERNIA [None]
  - BACK PAIN [None]
  - CHEST PAIN [None]
  - RENAL FAILURE CHRONIC [None]
  - URTICARIA [None]
  - HYPOPNOEA [None]
  - CHOKING [None]
  - MENTAL STATUS CHANGES [None]
  - CHOLELITHIASIS [None]
  - TROPONIN INCREASED [None]
  - HYPERSENSITIVITY [None]
  - FACIAL ASYMMETRY [None]
  - GASTRITIS [None]
  - ECONOMIC PROBLEM [None]
  - EXCESSIVE EYE BLINKING [None]
  - SYNCOPE [None]
  - ATRIAL FIBRILLATION [None]
  - RESTLESS LEGS SYNDROME [None]
  - LIPIDS ABNORMAL [None]
  - COUGH [None]
  - HYPOTENSION [None]
  - GASTROOESOPHAGEAL REFLUX DISEASE [None]
  - URINARY TRACT INFECTION [None]
  - PALPITATIONS [None]
  - PRURITUS [None]
  - CAROTID ARTERY STENOSIS [None]
  - CEREBROVASCULAR STENOSIS [None]
